FAERS Safety Report 9011392 (Version 1)
Quarter: 2013Q1

REPORT INFORMATION
  Report Type: Spontaneous
  Country: US (occurrence: US)
  Receive Date: 20130108
  Receipt Date: 20130108
  Transmission Date: 20140127
  Serious: No
  Sender: FDA-Public Use
  Company Number: US-PFIZER INC-2013002719

PATIENT
  Age: 58 Year
  Sex: Female
  Weight: 104.31 kg

DRUGS (5)
  1. PREMARIN [Suspect]
     Dosage: 0.45 MG, 1X/DAY
     Route: 048
     Dates: end: 201211
  2. LASIX [Concomitant]
     Dosage: UNK
  3. ALLOPURINOL [Concomitant]
     Dosage: UNK
  4. VITAMIN B12 [Concomitant]
     Dosage: UNK
  5. LOSARTAN [Concomitant]
     Dosage: UNK

REACTIONS (2)
  - Arthralgia [Unknown]
  - Myalgia [Unknown]
